FAERS Safety Report 8029373-8 (Version None)
Quarter: 2012Q1

REPORT INFORMATION
  Report Type: 
  Country: None (occurrence: None)
  Receive Date: 20120106
  Receipt Date: 20120106
  Transmission Date: 20120608
  Serious: Yes (Hospitalization)
  Sender: FDA-Public Use
  Company Number: TW-ROCHE-1018224

PATIENT
  Sex: Female

DRUGS (14)
  1. MYCOPHENOLATE MOFETIL (CELLCEPT) [Concomitant]
  2. ALLOPURINOL [Concomitant]
     Route: 048
     Dates: start: 20080202
  3. PROTEASE [Concomitant]
     Indication: PROPHYLAXIS AGAINST TRANSPLANT REJECTION
     Route: 048
  4. MIRCERA [Suspect]
     Route: 058
     Dates: start: 20110901, end: 20111213
  5. CRESTOR [Concomitant]
     Route: 048
  6. FOLIC ACID [Concomitant]
     Route: 048
  7. MIRCERA [Suspect]
     Indication: NEPHROGENIC ANAEMIA
     Route: 058
     Dates: start: 20110531, end: 20110901
  8. SODIUM BICARBONATE [Concomitant]
     Route: 048
  9. PLENDIL [Concomitant]
     Indication: HYPERTENSION
     Route: 048
     Dates: start: 20080202
  10. METHYLPREDNISOLONE [Concomitant]
     Route: 048
  11. PROGRAF [Concomitant]
     Indication: PROPHYLAXIS AGAINST TRANSPLANT REJECTION
     Route: 048
  12. IMMUNOSUPPRESSANT [Suspect]
     Indication: PROPHYLAXIS AGAINST TRANSPLANT REJECTION
  13. MYCOPHENOLATE MOFETIL (CELLCEPT) [Concomitant]
     Indication: TRANSPLANT REJECTION
     Route: 048
     Dates: start: 20080202
  14. CARDOL (AUSTRALIA) [Concomitant]
     Route: 048

REACTIONS (2)
  - ANAEMIA [None]
  - REFRACTORY ANAEMIA [None]
